FAERS Safety Report 4946690-6 (Version None)
Quarter: 2006Q1

REPORT INFORMATION
  Report Type: 
  Country: None (occurrence: None)
  Receive Date: 20060317
  Receipt Date: 20050630
  Transmission Date: 20060701
  Serious: Yes (Hospitalization)
  Sender: FDA-Public Use
  Company Number: US-MERCK-0507USA00187

PATIENT
  Age: 67 Year
  Sex: Female
  Weight: 58 kg

DRUGS (8)
  1. VIOXX [Suspect]
     Indication: ARTHRITIS
     Route: 048
     Dates: start: 20030730, end: 20041001
  2. VIOXX [Suspect]
     Indication: COSTOCHONDRITIS
     Route: 048
     Dates: start: 20030730, end: 20041001
  3. NEURONTIN [Concomitant]
     Route: 065
  4. FLOMAX [Concomitant]
     Route: 065
  5. SYNTHROID [Concomitant]
     Route: 065
  6. OXOLAMINE [Concomitant]
     Route: 065
  7. NEXIUM [Concomitant]
     Route: 065
  8. TRAZODONE HYDROCHLORIDE [Concomitant]
     Route: 065

REACTIONS (16)
  - ADVERSE EVENT [None]
  - ANXIETY [None]
  - AORTIC VALVE DISEASE [None]
  - BUNDLE BRANCH BLOCK RIGHT [None]
  - COLITIS ULCERATIVE [None]
  - CORONARY ARTERY DISEASE [None]
  - CORONARY ARTERY OCCLUSION [None]
  - DIARRHOEA [None]
  - DIASTOLIC DYSFUNCTION [None]
  - ISCHAEMIC CARDIOMYOPATHY [None]
  - MUSCULOSKELETAL CHEST PAIN [None]
  - MYOCARDIAL INFARCTION [None]
  - PANCREATIC DISORDER [None]
  - PANIC ATTACK [None]
  - PLEURAL EFFUSION [None]
  - VERTIGO [None]
